FAERS Safety Report 23535118 (Version 1)
Quarter: 2024Q1

REPORT INFORMATION
  Report Type: Spontaneous
  Country: IT (occurrence: IT)
  Receive Date: 20240217
  Receipt Date: 20240217
  Transmission Date: 20240410
  Serious: Yes (Other)
  Sender: FDA-Public Use
  Company Number: IT-MYLANLABS-2023M1120563

PATIENT
  Age: 63 Year
  Sex: Female

DRUGS (3)
  1. PEMETREXED [Suspect]
     Active Substance: PEMETREXED
     Dosage: UNK
     Route: 065
     Dates: end: 202009
  2. PEMETREXED [Suspect]
     Active Substance: PEMETREXED
     Indication: Non-small cell lung cancer metastatic
     Dosage: UNK, CYCLE
     Route: 065
     Dates: start: 201911, end: 202009
  3. CISPLATIN [Concomitant]
     Active Substance: CISPLATIN
     Indication: Non-small cell lung cancer metastatic
     Dosage: UNK, CYCLE
     Route: 065
     Dates: start: 201911, end: 202003

REACTIONS (3)
  - Disease progression [Unknown]
  - RET gene mutation [Unknown]
  - Drug ineffective [Unknown]
